FAERS Safety Report 24197631 (Version 1)
Quarter: 2024Q3

REPORT INFORMATION
  Report Type: Spontaneous
  Country: US (occurrence: US)
  Receive Date: 20240811
  Receipt Date: 20240811
  Transmission Date: 20241017
  Serious: No
  Sender: SANOFI AVENTIS
  Company Number: US-SANOFI-02167083

PATIENT
  Age: 61 Year
  Sex: Female

DRUGS (2)
  1. LANTUS SOLOSTAR [Suspect]
     Active Substance: INSULIN GLARGINE
     Indication: Type 2 diabetes mellitus
     Dosage: 30 UNITS IN THE MORNING AND 20 UNITS IN THE EVENING, BID
  2. REPAGLINIDE [Concomitant]
     Active Substance: REPAGLINIDE
     Dosage: 0.5MG. MORNING AND NIGHT BEFORE MEALS

REACTIONS (2)
  - Gait disturbance [Unknown]
  - Inappropriate schedule of product administration [Unknown]
